FAERS Safety Report 8106202-5 (Version None)
Quarter: 2012Q1

REPORT INFORMATION
  Report Type: 
  Country: None (occurrence: None)
  Receive Date: 20120130
  Receipt Date: 20120120
  Transmission Date: 20120608
  Serious: Yes (Death)
  Sender: FDA-Public Use
  Company Number: IMP_05720_2012

PATIENT
  Age: 54 Year
  Sex: Female
  Weight: 76 kg

DRUGS (5)
  1. DIVALPROEX SODIUM [Suspect]
     Indication: CONVULSION
     Dosage: SEE IMAGE
     Route: 042
  2. LEVOFLOXACIN [Concomitant]
  3. CEFTRIAXONE [Concomitant]
  4. LEVETIRACETAM [Concomitant]
  5. DORIPENEM [Suspect]
     Indication: ENTEROBACTER INFECTION
     Dosage: (500 MG  1X/8 HOURS INTRAVENOUS (NOT OTHERWISE SPECIFIED))
     Route: 042

REACTIONS (5)
  - DRUG INTERACTION [None]
  - NO THERAPEUTIC RESPONSE [None]
  - ENTEROBACTER TEST POSITIVE [None]
  - GENERAL PHYSICAL HEALTH DETERIORATION [None]
  - ANTICONVULSANT DRUG LEVEL DECREASED [None]
